FAERS Safety Report 4779964-2 (Version None)
Quarter: 2005Q3

REPORT INFORMATION
  Report Type: 
  Country: None (occurrence: None)
  Receive Date: 20050927
  Receipt Date: 20050915
  Transmission Date: 20060218
  Serious: Yes (Hospitalization)
  Sender: FDA-Public Use
  Company Number: RO-GLAXOSMITHKLINE-B0394557A

PATIENT
  Age: 2 Year
  Sex: Male

DRUGS (1)
  1. ZENTEL [Suspect]
     Indication: GIARDIASIS
     Dates: start: 20050113, end: 20050117

REACTIONS (2)
  - INFECTION [None]
  - TRANSAMINASES INCREASED [None]
